FAERS Safety Report 13356004 (Version 1)
Quarter: 2017Q1

REPORT INFORMATION
  Report Type: Spontaneous
  Country: DE (occurrence: DE)
  Receive Date: 20170321
  Receipt Date: 20170321
  Transmission Date: 20170429
  Serious: Yes (Other)
  Sender: FDA-Public Use
  Company Number: ALCN2017DE001970

PATIENT
  Sex: Female

DRUGS (3)
  1. TOBRADEX [Suspect]
     Active Substance: DEXAMETHASONE\TOBRAMYCIN
     Dosage: 1 DF, TID
     Route: 047
     Dates: start: 20170306, end: 201703
  2. TAFLOTAN [Concomitant]
     Active Substance: TAFLUPROST
     Indication: PRODUCT USED FOR UNKNOWN INDICATION
     Dosage: UNK
     Route: 047
  3. TOBRADEX [Suspect]
     Active Substance: DEXAMETHASONE\TOBRAMYCIN
     Indication: POSTOPERATIVE CARE
     Dosage: 1 DF, 5QD
     Route: 047
     Dates: start: 20170302, end: 20170305

REACTIONS (4)
  - Headache [Unknown]
  - Deafness [Unknown]
  - Tinnitus [Unknown]
  - Deafness transitory [Unknown]

NARRATIVE: CASE EVENT DATE: 201703
